FAERS Safety Report 25425357 (Version 1)
Quarter: 2025Q2

REPORT INFORMATION
  Report Type: Spontaneous
  Country: US (occurrence: None)
  Receive Date: 20250605
  Receipt Date: 20250605
  Transmission Date: 20250716
  Serious: No
  Sender: FDA-CTU
  Company Number: None

PATIENT

DRUGS (1)
  1. EVENITY [Suspect]
     Active Substance: ROMOSOZUMAB-AQQG
     Indication: Multiple allergies

REACTIONS (5)
  - Osteoporosis [None]
  - JC virus infection [None]
  - Cognitive disorder [None]
  - Laboratory test abnormal [None]
  - Disease risk factor [None]
